FAERS Safety Report 23027919 (Version 2)
Quarter: 2023Q4

REPORT INFORMATION
  Report Type: Spontaneous
  Country: CH (occurrence: CH)
  Receive Date: 20231004
  Receipt Date: 20231012
  Transmission Date: 20240110
  Serious: Yes (Other)
  Sender: FDA-Public Use
  Company Number: None

PATIENT
  Age: 65 Year
  Sex: Female

DRUGS (27)
  1. ELIQUIS [Suspect]
     Active Substance: APIXABAN
     Indication: Thrombosis prophylaxis
     Dosage: 2.5 MG, 1X/DAY
     Route: 048
  2. METHOTREXATE SODIUM [Suspect]
     Active Substance: METHOTREXATE SODIUM
     Indication: Polyarthritis
     Dosage: 5 MG, WEEKLY
     Route: 048
     Dates: start: 202207
  3. PALEXIA [Suspect]
     Active Substance: TAPENTADOL HYDROCHLORIDE
     Dosage: 50 MG, Q12H
     Route: 048
  4. CREON [Suspect]
     Active Substance: PANCRELIPASE AMYLASE\PANCRELIPASE LIPASE\PANCRELIPASE PROTEASE
     Dosage: 1 DF, 1X/DAY
     Route: 048
  5. CALCITRIOL [Suspect]
     Active Substance: CALCITRIOL
     Dosage: 0.5 UG, 1X/DAY
     Route: 048
  6. ALLOPURINOL [Suspect]
     Active Substance: ALLOPURINOL
     Dosage: 300 MG /TAG
     Route: 048
  7. ZALDIAR [Suspect]
     Active Substance: ACETAMINOPHEN\TRAMADOL HYDROCHLORIDE
     Dosage: 37.5/325 MG 4X/TAG
     Route: 048
  8. FOSAVANCE [Suspect]
     Active Substance: ALENDRONATE SODIUM\CHOLECALCIFEROL
     Dosage: 70/5600 1
  9. ZINC GLUCONATE [Suspect]
     Active Substance: ZINC GLUCONATE
     Dosage: 20 MG /TAG
     Route: 048
  10. ESOMEPRAZOLE MAGNESIUM [Suspect]
     Active Substance: ESOMEPRAZOLE\ESOMEPRAZOLE MAGNESIUM\ESOMEPRAZOLE MAGNESIUM DIHYDRATE
     Dosage: 40 MG /TAG
     Route: 048
  11. PREDNISOLONE [Suspect]
     Active Substance: PREDNISOLONE
     Indication: Polyarthritis
     Dosage: 5 MG /TAG
     Route: 048
  12. ENTOCORT [Suspect]
     Active Substance: BUDESONIDE
     Dosage: 3 MG, Q8H
     Route: 048
  13. DICLOFENAC SODIUM [Suspect]
     Active Substance: DICLOFENAC\DICLOFENAC SODIUM
     Dosage: UNK
  14. MOTILIUM [Suspect]
     Active Substance: DOMPERIDONE
     Dosage: 10 MG, 1X/DAY
     Route: 060
  15. FEXOFENADINE HYDROCHLORIDE [Suspect]
     Active Substance: FEXOFENADINE HYDROCHLORIDE
     Dosage: 180 MG, Q12H
     Route: 048
  16. CALCIUM CARBONATE\CHOLECALCIFEROL [Suspect]
     Active Substance: CALCIUM CARBONATE\CHOLECALCIFEROL
     Dosage: KALCIPOS-D3 FILMTABL 500/800 DS 90 STK 2-2-2-0, Q8H
  17. CHOLECALCIFEROL [Suspect]
     Active Substance: CHOLECALCIFEROL
     Dosage: 4000 IU, 1X/DAY
     Route: 048
  18. LEVOTHYROXINE [Concomitant]
     Active Substance: LEVOTHYROXINE
     Indication: Autoimmune thyroiditis
     Dosage: 50 UG, 1X/DAY
     Route: 048
  19. LEVOTHYROXINE [Concomitant]
     Active Substance: LEVOTHYROXINE
     Dosage: 100 UG, 1X/DAY
     Route: 048
  20. FOLIC ACID [Concomitant]
     Active Substance: FOLIC ACID
     Dosage: 5 MG, 2X/DAY
  21. VITARUBIN [CYANOCOBALAMIN] [Concomitant]
     Dosage: UNK UNK, WEEKLY
  22. VITACON [CYANOCOBALAMIN] [Concomitant]
     Dosage: 10 MG, 1X/DAY
  23. SELENASE [SELENIDE SODIUM] [Concomitant]
     Dosage: SELENASE ORAL SOLUTION 100 MCG 90 DRINKABLE VIAL 2 ML 1-0-0-0 MON/WED/FRI
     Route: 048
  24. ZINC [Concomitant]
     Active Substance: ZINC
     Dosage: ZINC BIOMED
  25. MAGNESIUM [Concomitant]
     Active Substance: MAGNESIUM
     Dosage: MAGNESIUM VITAL COMPLEX CAPSULES 1.25 MMOL 40 PCS 1-1-0-1
  26. CARBOHYDRATES\FATTY ACIDS\MINERALS\PROTEIN\VITAMINS [Concomitant]
     Active Substance: CARBOHYDRATES\FATTY ACIDS\MINERALS\PROTEIN\VITAMINS
     Dosage: FRESUBIN PROTEIN POWDER NEUTRAL 300 G 2-0-2-0
  27. VITAMIN E [Concomitant]
     Active Substance: .ALPHA.-TOCOPHEROL
     Dosage: 800 IU, 3X/DAY

REACTIONS (2)
  - Anaemia macrocytic [Unknown]
  - Liver disorder [Unknown]
